FAERS Safety Report 12551160 (Version 1)
Quarter: 2016Q3

REPORT INFORMATION
  Report Type: Spontaneous
  Country: US (occurrence: US)
  Receive Date: 20160713
  Receipt Date: 20160713
  Transmission Date: 20161109
  Serious: No
  Sender: FDA-Public Use
  Company Number: US-009507513-1607USA005011

PATIENT

DRUGS (1)
  1. EMEND [Suspect]
     Active Substance: APREPITANT
     Dosage: MISSED ONE CAPSULE ON AN UNKNOWN DATES
     Route: 048

REACTIONS (2)
  - Drug dose omission [Unknown]
  - Dysphagia [Unknown]
